FAERS Safety Report 6753183-2 (Version None)
Quarter: 2010Q2

REPORT INFORMATION
  Report Type: 
  Country: None (occurrence: None)
  Receive Date: 20100603
  Receipt Date: 20090728
  Transmission Date: 20101027
  Serious: No
  Sender: FDA-Public Use
  Company Number: US-KINGPHARMUSA00001-K200900890

PATIENT
  Sex: Female

DRUGS (4)
  1. CORTISPORIN [Suspect]
     Dosage: UNK
     Dates: start: 19900101, end: 19900101
  2. NORVASC [Concomitant]
  3. NEXIUM [Concomitant]
  4. ZOLOFT [Concomitant]

REACTIONS (2)
  - ERYTHEMA [None]
  - JOINT SWELLING [None]
